FAERS Safety Report 11178065 (Version 1)
Quarter: 2015Q2

REPORT INFORMATION
  Report Type: Spontaneous
  Country: US (occurrence: None)
  Receive Date: 20150515
  Receipt Date: 20150515
  Transmission Date: 20150821
  Serious: Yes (Hospitalization, Other)
  Sender: FDA-Public Use
  Company Number: 2015005057

PATIENT
  Age: 46 Year

DRUGS (9)
  1. B-12 (CYANOCOBALAMIN) INJECTION [Concomitant]
  2. POTASSIUM (POTASSIUM) [Concomitant]
     Active Substance: POTASSIUM
  3. PENTASA [Concomitant]
     Active Substance: MESALAMINE
  4. VITAMIN D (COLECALCIFEROL) [Concomitant]
  5. PREDNISONE (PREDNISONE) [Concomitant]
     Active Substance: PREDNISONE
  6. NEXIUM [Concomitant]
     Active Substance: ESOMEPRAZOLE MAGNESIUM
  7. HUMIRA [Concomitant]
     Active Substance: ADALIMUMAB
  8. FLAGYL [Concomitant]
     Active Substance: METRONIDAZOLE\METRONIDAZOLE HYDROCHLORIDE
  9. CIMZIA [Suspect]
     Active Substance: CERTOLIZUMAB PEGOL
     Indication: CROHN^S DISEASE
     Dates: start: 2013

REACTIONS (7)
  - Insomnia [None]
  - Impaired work ability [None]
  - Depression [None]
  - Large intestinal stenosis [None]
  - Malaise [None]
  - Crohn^s disease [None]
  - Fatigue [None]

NARRATIVE: CASE EVENT DATE: 201411
